FAERS Safety Report 21847393 (Version 1)
Quarter: 2023Q1

REPORT INFORMATION
  Report Type: Spontaneous
  Country: US (occurrence: US)
  Receive Date: 20230111
  Receipt Date: 20230111
  Transmission Date: 20230417
  Serious: No
  Sender: FDA-Public Use
  Company Number: US-SA-SAC20230109001257

PATIENT
  Sex: Female

DRUGS (1)
  1. DUPIXENT [Suspect]
     Active Substance: DUPILUMAB
     Indication: Illness
     Dosage: UNK
     Route: 058

REACTIONS (8)
  - Initial insomnia [Unknown]
  - Dry skin [Unknown]
  - Skin exfoliation [Unknown]
  - Skin weeping [Unknown]
  - Skin haemorrhage [Unknown]
  - Pruritus [Unknown]
  - Rash [Unknown]
  - Eczema [Unknown]

NARRATIVE: CASE EVENT DATE: 20230101
